FAERS Safety Report 9644466 (Version 2)
Quarter: 2020Q4

REPORT INFORMATION
  Report Type: Spontaneous
  Country: CN (occurrence: CN)
  Receive Date: 20131025
  Receipt Date: 20201218
  Transmission Date: 20210114
  Serious: Yes (Hospitalization, Other)
  Sender: FDA-Public Use
  Company Number: CN-ASTRAZENECA-2013SE76648

PATIENT
  Age: 20 Year
  Sex: Male

DRUGS (6)
  1. CETIRIZINE MIZOLASTINE [Concomitant]
     Route: 065
  2. OMEPRAZOLE. [Suspect]
     Active Substance: OMEPRAZOLE
     Route: 048
  3. PANTOPRAZOLE [Concomitant]
     Active Substance: PANTOPRAZOLE
     Route: 065
  4. METHYLPREDNISOLONE. [Concomitant]
     Active Substance: METHYLPREDNISOLONE
     Indication: LEPTOSPIROSIS
     Dosage: 3-DAY COURSE OF METHYLPREDNISOLONE ADMINISTERED AT A DOSE OF 80 MG (1.6 MG/KG)
     Route: 065
  5. OMEPRAZOLE. [Suspect]
     Active Substance: OMEPRAZOLE
     Route: 048
  6. METHYLPREDNISOLONE. [Concomitant]
     Active Substance: METHYLPREDNISOLONE
     Indication: LEPTOSPIROSIS
     Route: 048

REACTIONS (1)
  - Linear IgA disease [Recovered/Resolved]
